FAERS Safety Report 20232586 (Version 1)
Quarter: 2021Q4

REPORT INFORMATION
  Report Type: Spontaneous
  Country: IN (occurrence: IN)
  Receive Date: 20211227
  Receipt Date: 20211227
  Transmission Date: 20220303
  Serious: Yes (Other)
  Sender: FDA-Public Use
  Company Number: IN-PFIZER INC-202100935824

PATIENT
  Age: 87 Year
  Sex: Male

DRUGS (1)
  1. SUTENT [Suspect]
     Active Substance: SUNITINIB MALATE
     Indication: Metastatic renal cell carcinoma
     Dosage: 25 MG, 1X/DAY
     Route: 048
     Dates: start: 20210617

REACTIONS (5)
  - Parkinsonism [Unknown]
  - Tremor [Unknown]
  - Pyelonephritis chronic [Unknown]
  - Asthenia [Unknown]
  - Chest pain [Unknown]
